FAERS Safety Report 17641261 (Version 1)
Quarter: 2020Q2

REPORT INFORMATION
  Report Type: Report from Study
  Country: CO (occurrence: CO)
  Receive Date: 20200407
  Receipt Date: 20200407
  Transmission Date: 20200713
  Serious: Yes (Other)
  Sender: FDA-Public Use
  Company Number: NVSC2020CO047498

PATIENT
  Sex: Female

DRUGS (3)
  1. FEMARA [Suspect]
     Active Substance: LETROZOLE
     Indication: BREAST CANCER
     Dosage: 2.5 MG, QD
     Route: 048
  2. TRAMADOL. [Suspect]
     Active Substance: TRAMADOL
     Indication: PRODUCT USED FOR UNKNOWN INDICATION
     Dosage: 6 DRP, Q6H
     Route: 065
  3. KISQALI [Suspect]
     Active Substance: RIBOCICLIB
     Indication: BREAST CANCER
     Dosage: 600 MG, QD
     Route: 048
     Dates: start: 20190129

REACTIONS (10)
  - Breast inflammation [Unknown]
  - Leukopenia [Unknown]
  - Post procedural discomfort [Unknown]
  - Neutrophilia [Unknown]
  - Decreased immune responsiveness [Unknown]
  - Nausea [Unknown]
  - Breast haemorrhage [Unknown]
  - Oropharyngeal pain [Unknown]
  - Reflux gastritis [Unknown]
  - Product dose omission [Unknown]
